FAERS Safety Report 8989810 (Version 1)
Quarter: 2012Q4

REPORT INFORMATION
  Report Type: 
  Country: SE (occurrence: SE)
  Receive Date: 20121228
  Receipt Date: 20121228
  Transmission Date: 20130627
  Serious: Yes (Hospitalization)
  Sender: FDA-Public Use
  Company Number: SE-TEVA-377247ISR

PATIENT
  Age: 80 Year
  Sex: Female

DRUGS (12)
  1. OXASCAND [Suspect]
     Dosage: 10 Milligram Daily;
     Route: 048
     Dates: start: 20121002, end: 20121002
  2. MOVICOL [Concomitant]
  3. TERRACOTRIL [Concomitant]
  4. NOVIFORM [Concomitant]
  5. PANODIL [Concomitant]
     Route: 048
  6. STESOLID [Concomitant]
     Route: 054
  7. FURIX [Concomitant]
     Route: 048
  8. RESULAX [Concomitant]
  9. FENURIL [Concomitant]
  10. MONILEN [Concomitant]
  11. ARTELAC [Concomitant]
  12. CLOZAPINE ACTAVIS [Concomitant]

REACTIONS (4)
  - Hypersensitivity [Recovered/Resolved]
  - Depressed level of consciousness [Recovered/Resolved]
  - Respiratory depression [Recovered/Resolved]
  - Somnolence [Unknown]
